FAERS Safety Report 10469082 (Version 3)
Quarter: 2014Q4

REPORT INFORMATION
  Report Type: Spontaneous
  Country: US (occurrence: US)
  Receive Date: 20140923
  Receipt Date: 20141011
  Transmission Date: 20150528
  Serious: Yes (Death, Hospitalization)
  Sender: FDA-Public Use
  Company Number: US-AMGEN-USASP2014072041

PATIENT
  Age: 85 Year
  Sex: Female
  Weight: 35.37 kg

DRUGS (3)
  1. SENSIPAR [Concomitant]
     Active Substance: CINACALCET HYDROCHLORIDE
     Indication: BLOOD CALCIUM INCREASED
     Dosage: 120 MG, QD
     Route: 048
  2. ZOMETA [Concomitant]
     Active Substance: ZOLEDRONIC ACID
     Dosage: UNK
     Dates: start: 20140501
  3. PROLIA [Suspect]
     Active Substance: DENOSUMAB
     Indication: PRODUCT USED FOR UNKNOWN INDICATION
     Dosage: 60 MG, ONCE
     Route: 058
     Dates: start: 20130318

REACTIONS (6)
  - Hypercalcaemia [Recovered/Resolved]
  - Weight decreased [Unknown]
  - Hypocalcaemic seizure [Recovered/Resolved]
  - Chronic kidney disease [Fatal]
  - Decreased appetite [Unknown]
  - Failure to thrive [Unknown]

NARRATIVE: CASE EVENT DATE: 20140328
